FAERS Safety Report 6943694-9 (Version None)
Quarter: 2010Q3

REPORT INFORMATION
  Report Type: 
  Country: None (occurrence: None)
  Receive Date: 20100826
  Receipt Date: 20100812
  Transmission Date: 20110219
  Serious: Yes (Hospitalization, Other)
  Sender: FDA-Public Use
  Company Number: US-ELI_LILLY_AND_COMPANY-US201008005240

PATIENT
  Age: 56 Year
  Sex: Female
  Weight: 68.027 kg

DRUGS (1)
  1. EFFIENT [Suspect]
     Indication: ANGIOPLASTY
     Dosage: 10 MG, DAILY (1/D)
     Dates: start: 20100301

REACTIONS (9)
  - ASTHENIA [None]
  - BALANCE DISORDER [None]
  - CEREBROVASCULAR ACCIDENT [None]
  - DISORIENTATION [None]
  - DIZZINESS [None]
  - DYSSTASIA [None]
  - OFF LABEL USE [None]
  - PARAESTHESIA [None]
  - VISUAL IMPAIRMENT [None]
